FAERS Safety Report 18696480 (Version 1)
Quarter: 2021Q1

REPORT INFORMATION
  Report Type: Spontaneous
  Country: US (occurrence: US)
  Receive Date: 20210104
  Receipt Date: 20210104
  Transmission Date: 20210419
  Serious: No
  Sender: FDA-Public Use
  Company Number: US-UPSHER-SMITH LABORATORIES, LLC-2020USL00574

PATIENT
  Sex: Female

DRUGS (11)
  1. UNSPECIFIED SUPPLEMENTS [Concomitant]
  2. KLOR?CON M [Suspect]
     Active Substance: POTASSIUM CHLORIDE
     Indication: BLOOD POTASSIUM DECREASED
     Dosage: 30 MEQ, 1X/DAY
     Dates: start: 2019
  3. IBUPROFEN. [Concomitant]
     Active Substance: IBUPROFEN
     Dosage: 800 MG, AS NEEDED
  4. TRINTELLIX [Concomitant]
     Active Substance: VORTIOXETINE HYDROBROMIDE
     Dosage: 5 MG
  5. ^ELASTANE^ [Concomitant]
  6. METAXALONE. [Concomitant]
     Active Substance: METAXALONE
     Dosage: UNK, AS NEEDED
  7. CLORAZEPATE [Concomitant]
     Active Substance: CLORAZEPATE DIPOTASSIUM
     Dosage: 3.75 MG
  8. EDARBYCLOR [Concomitant]
     Active Substance: AZILSARTAN KAMEDOXOMIL\CHLORTHALIDONE
     Dosage: 40 MG
  9. METFORMIN [Concomitant]
     Active Substance: METFORMIN HYDROCHLORIDE
     Dosage: 500 MG, 1X/DAY
  10. LEVOTHYROXINE. [Concomitant]
     Active Substance: LEVOTHYROXINE
     Dosage: 0.125 MG
  11. ESTRING [Concomitant]
     Active Substance: ESTRADIOL

REACTIONS (3)
  - Choking [Not Recovered/Not Resolved]
  - Throat irritation [Unknown]
  - Foreign body in throat [Unknown]
